FAERS Safety Report 7983372-0 (Version None)
Quarter: 2011Q4

REPORT INFORMATION
  Report Type: 
  Country: None (occurrence: None)
  Receive Date: 20111215
  Receipt Date: 20111212
  Transmission Date: 20120403
  Serious: Yes (Hospitalization, Other)
  Sender: FDA-Public Use
  Company Number: US-CELGENEUS-163-21880-11121433

PATIENT
  Sex: Male
  Weight: 85.806 kg

DRUGS (17)
  1. FISH OIL [Concomitant]
     Route: 065
  2. HYDROCODONE [Concomitant]
     Route: 065
  3. LISINOPRIL [Concomitant]
     Route: 065
  4. FOLIC ACID [Concomitant]
     Route: 065
  5. MIRALAX [Concomitant]
     Route: 065
  6. PANTOPRAZOLE [Concomitant]
     Route: 065
  7. SIMVASTATIN [Concomitant]
     Route: 065
  8. ANTIBIOTICS [Concomitant]
     Route: 065
  9. CALCIUM [Concomitant]
     Route: 065
  10. FENTANYL DISC [Concomitant]
     Route: 065
  11. REVLIMID [Suspect]
     Indication: MULTIPLE MYELOMA
     Dosage: 5 MILLIGRAM
     Route: 048
     Dates: start: 20110110
  12. PROCHLORPERAZINE [Concomitant]
     Route: 065
  13. VITAMIN B-12 [Concomitant]
     Route: 065
  14. VITAMIN D [Concomitant]
     Route: 065
  15. ATIVAN [Concomitant]
     Route: 065
  16. LEVOTHYROXINE SODIUM [Concomitant]
     Route: 065
  17. BACLOFEN [Concomitant]
     Route: 065

REACTIONS (3)
  - OSTEONECROSIS [None]
  - GINGIVAL INFECTION [None]
  - FALL [None]
